FAERS Safety Report 6316258-8 (Version None)
Quarter: 2009Q3

REPORT INFORMATION
  Report Type: 
  Country: None (occurrence: None)
  Receive Date: 20090819
  Receipt Date: 20090819
  Transmission Date: 20100115
  Serious: Yes (Death)
  Sender: FDA-Public Use
  Company Number: None

PATIENT
  Sex: Male

DRUGS (9)
  1. REVLIMID [Suspect]
     Indication: MULTIPLE MYELOMA
     Dosage: REVLIMID 15MG DAILY X 21 DAYS ORAL
     Route: 048
     Dates: start: 20070131, end: 20081101
  2. DEXAMETHASONE [Concomitant]
  3. WARFARIN SODIUM [Concomitant]
  4. LOVASTATIN [Concomitant]
  5. PROCRIT [Concomitant]
  6. GABAPENTIN [Concomitant]
  7. OMEPRAXZOLE [Concomitant]
  8. FORTICAL [Concomitant]
  9. K-TAB [Concomitant]

REACTIONS (4)
  - DEHYDRATION [None]
  - HYPERCALCAEMIA [None]
  - INTERNATIONAL NORMALISED RATIO INCREASED [None]
  - RENAL FAILURE ACUTE [None]
